FAERS Safety Report 16530938 (Version 1)
Quarter: 2019Q3

REPORT INFORMATION
  Report Type: Spontaneous
  Country: US (occurrence: US)
  Receive Date: 20190704
  Receipt Date: 20190704
  Transmission Date: 20191004
  Serious: Yes (Hospitalization)
  Sender: FDA-Public Use
  Company Number: PHHY2019US149662

PATIENT
  Age: 56 Year
  Sex: Female

DRUGS (4)
  1. METHOTREXATE. [Suspect]
     Active Substance: METHOTREXATE
     Indication: SJOGREN^S SYNDROME
     Dosage: 15 MG, QW
     Route: 065
  2. HYDROXYCHLOROQUINE [Concomitant]
     Active Substance: HYDROXYCHLOROQUINE
     Indication: PSORIASIS
     Dosage: 200 MG, BID
     Route: 065
  3. MYCOPHENOLATE MOFETIL. [Concomitant]
     Active Substance: MYCOPHENOLATE MOFETIL
     Indication: PSORIASIS
     Dosage: 1000 MG, BID
     Route: 065
  4. METHOTREXATE. [Suspect]
     Active Substance: METHOTREXATE
     Indication: PSORIASIS
     Dosage: 15 UNK, UNK
     Route: 065

REACTIONS (16)
  - Lymphoproliferative disorder [Recovering/Resolving]
  - Lymphadenopathy [Recovering/Resolving]
  - Chills [Unknown]
  - Acute kidney injury [Recovering/Resolving]
  - Blood creatinine increased [Recovering/Resolving]
  - Cough [Recovered/Resolved]
  - Splenomegaly [Unknown]
  - Product use in unapproved indication [Unknown]
  - Fatigue [Unknown]
  - Pancytopenia [Recovering/Resolving]
  - Hypercalcaemia [Recovered/Resolved]
  - Decreased appetite [Unknown]
  - Weight decreased [Unknown]
  - Asthenia [Unknown]
  - Immunodeficiency [Unknown]
  - Pyrexia [Unknown]
